FAERS Safety Report 13768431 (Version 5)
Quarter: 2018Q1

REPORT INFORMATION
  Report Type: Report from Study
  Country: JP (occurrence: JP)
  Receive Date: 20170719
  Receipt Date: 20180222
  Transmission Date: 20180508
  Serious: Yes (Life-Threatening, Hospitalization, Disabling)
  Sender: FDA-Public Use
  Company Number: JP-ACTELION-A-CH2017-156595

PATIENT
  Age: 30 Year
  Sex: Male

DRUGS (20)
  1. OPSUMIT [Suspect]
     Active Substance: MACITENTAN
     Indication: PULMONARY ARTERIAL HYPERTENSION
     Dosage: 10 MG, QD
     Route: 048
     Dates: start: 20160913
  2. REVATIO [Concomitant]
     Active Substance: SILDENAFIL CITRATE
  3. BAKTAR [Suspect]
     Active Substance: SULFAMETHOXAZOLE\TRIMETHOPRIM
     Indication: ANTIVIRAL PROPHYLAXIS
     Dosage: UNK
     Route: 048
     Dates: start: 20160902, end: 20161007
  4. MONILAC [Concomitant]
     Active Substance: LACTULOSE
  5. EDIROL [Suspect]
     Active Substance: ELDECALCITOL
     Indication: OSTEOPOROSIS
     Dosage: 0.75 ?G, QD
     Route: 048
     Dates: start: 20161007, end: 20170328
  6. PROMAC [Concomitant]
     Active Substance: NITROFURANTOIN
     Indication: OSTEOPOROSIS
     Dosage: 0.75 MG, QD
     Route: 048
     Dates: start: 20161007, end: 20170328
  7. ASPARA-CA [Suspect]
     Active Substance: CALCIUM ASPARTATE
     Indication: OSTEOPOROSIS
     Dosage: 200 MG, BID
     Route: 048
     Dates: start: 20150807, end: 20170328
  8. PREDNISOLONE. [Concomitant]
     Active Substance: PREDNISOLONE
  9. SAMSCA [Concomitant]
     Active Substance: TOLVAPTAN
  10. FEBURIC [Concomitant]
     Active Substance: FEBUXOSTAT
  11. LIVACT [Concomitant]
     Active Substance: AMINO ACIDS
  12. BAKTAR [Suspect]
     Active Substance: SULFAMETHOXAZOLE\TRIMETHOPRIM
     Dosage: 1 DF, QD
     Route: 048
     Dates: start: 20170713
  13. URSO [Concomitant]
     Active Substance: URSODIOL
  14. FORTEO [Suspect]
     Active Substance: TERIPARATIDE
     Indication: OSTEOPOROSIS
     Dosage: 600 ?G, QD
     Route: 042
     Dates: start: 201508, end: 20170328
  15. LASIX [Concomitant]
     Active Substance: FUROSEMIDE
  16. ALDACTONE A [Concomitant]
     Active Substance: SPIRONOLACTONE
  17. NEXIUM [Concomitant]
     Active Substance: ESOMEPRAZOLE MAGNESIUM
  18. AMINOLEBAN EN [Concomitant]
     Active Substance: UNSPECIFIED INGREDIENT
  19. GLAKAY [Concomitant]
     Active Substance: MENATETRENONE
  20. LOXONIN [Concomitant]
     Active Substance: LOXOPROFEN SODIUM

REACTIONS (9)
  - Anaemia [Not Recovered/Not Resolved]
  - Pneumonia [Recovering/Resolving]
  - Dehydration [Recovered/Resolved]
  - Acute kidney injury [Recovering/Resolving]
  - Blood bilirubin increased [Not Recovered/Not Resolved]
  - Hypercalcaemia [Recovering/Resolving]
  - Hepatic encephalopathy [Recovered/Resolved]
  - Umbilical hernia [Recovered/Resolved]
  - Hernia repair [Unknown]

NARRATIVE: CASE EVENT DATE: 20161007
